FAERS Safety Report 13631751 (Version 5)
Quarter: 2017Q3

REPORT INFORMATION
  Report Type: Report from Study
  Country: US (occurrence: US)
  Receive Date: 20170608
  Receipt Date: 20170831
  Transmission Date: 20171127
  Serious: Yes (Death, Other)
  Sender: FDA-Public Use
  Company Number: US-ACTELION-A-NJ2017-154875

PATIENT
  Age: 73 Year
  Sex: Female

DRUGS (2)
  1. OPSUMIT [Suspect]
     Active Substance: MACITENTAN
     Indication: PULMONARY ARTERIAL HYPERTENSION
     Dosage: 10 MG, QD
     Route: 048
     Dates: start: 20140324
  2. SLOW MAG [Concomitant]
     Active Substance: MAGNESIUM CHLORIDE

REACTIONS (7)
  - Blood magnesium decreased [Unknown]
  - Malaise [Unknown]
  - Death [Fatal]
  - Lung carcinoma cell type unspecified stage IV [Unknown]
  - Nausea [Unknown]
  - Fungal infection [Unknown]
  - Chemotherapy [Unknown]
